FAERS Safety Report 13329722 (Version 3)
Quarter: 2017Q2

REPORT INFORMATION
  Report Type: Spontaneous
  Country: ZA (occurrence: ZA)
  Receive Date: 20170313
  Receipt Date: 20170413
  Transmission Date: 20170830
  Serious: Yes (Other)
  Sender: FDA-Public Use
  Company Number: ZA-PFIZER INC-2017099244

PATIENT
  Age: 67 Year
  Sex: Male
  Weight: 77 kg

DRUGS (8)
  1. CALCIFEROL [Concomitant]
     Active Substance: ERGOCALCIFEROL
     Dosage: 50,000 U WEEKLY
  2. PLENISH-K [Concomitant]
     Active Substance: POTASSIUM CHLORIDE
     Dosage: UNK, DAILY
  3. LANZOR [Concomitant]
     Active Substance: LANSOPRAZOLE
     Dosage: 15 MG, UNK
  4. CELEBREX [Suspect]
     Active Substance: CELECOXIB
     Indication: OSTEOARTHRITIS
     Dosage: 200 MG, 1X/DAY
  5. FOLATE [Concomitant]
     Active Substance: FOLATE SODIUM
     Dosage: 5 MG, DAILY
  6. B CAL DM [Concomitant]
     Dosage: UNK
  7. PREDNISONE. [Concomitant]
     Active Substance: PREDNISONE
     Dosage: 30 MG, DAILY MONTH 1 THEN 20 MG DAILY IN MONTH 2
     Dates: start: 20170323
  8. CELEBREX [Suspect]
     Active Substance: CELECOXIB
     Dosage: 100 MG, 1X/DAY
     Dates: end: 20170325

REACTIONS (12)
  - Impaired work ability [Unknown]
  - Asthenia [Unknown]
  - Respiratory tract infection [Unknown]
  - Pharyngitis [Unknown]
  - Tonsillitis [Unknown]
  - Incorrect drug administration duration [Unknown]
  - Ear disorder [Unknown]
  - Platelet count increased [Unknown]
  - Mental impairment [Unknown]
  - Fatigue [Unknown]
  - Somnolence [Unknown]
  - Apathy [Unknown]

NARRATIVE: CASE EVENT DATE: 20170317
